FAERS Safety Report 9372197 (Version 1)
Quarter: 2013Q2

REPORT INFORMATION
  Report Type: Report from Study
  Country: US (occurrence: US)
  Receive Date: 20130627
  Receipt Date: 20130627
  Transmission Date: 20140414
  Serious: Yes (Death)
  Sender: FDA-Public Use
  Company Number: US-MYLANLABS-2012S1016836

PATIENT
  Age: 54 Year
  Sex: Male
  Weight: 128.82 kg

DRUGS (6)
  1. CLOZAPINE TABLETS [Suspect]
     Indication: SCHIZOPHRENIA, PARANOID TYPE
     Dates: start: 20110429, end: 20120702
  2. CLOZAPINE TABLETS [Suspect]
     Indication: SCHIZOPHRENIA, PARANOID TYPE
     Route: 048
     Dates: end: 201205
  3. CLOZAPINE [Suspect]
     Indication: SCHIZOPHRENIA, PARANOID TYPE
     Route: 048
     Dates: start: 201205, end: 201207
  4. CLOZAPINE [Suspect]
     Indication: SCHIZOPHRENIA, PARANOID TYPE
     Route: 048
     Dates: start: 201205, end: 201207
  5. THORAZINE /00011901/ [Concomitant]
  6. DEPAKOTE ER [Concomitant]

REACTIONS (1)
  - Myocardial infarction [Fatal]
